FAERS Safety Report 19770410 (Version 1)
Quarter: 2021Q3

REPORT INFORMATION
  Report Type: Spontaneous
  Country: US (occurrence: US)
  Receive Date: 20210831
  Receipt Date: 20210831
  Transmission Date: 20211014
  Serious: Yes (Other)
  Sender: FDA-Public Use
  Company Number: None

PATIENT
  Age: 84 Year
  Sex: Male
  Weight: 72.9 kg

DRUGS (5)
  1. TYLENOL [Concomitant]
     Active Substance: ACETAMINOPHEN
  2. LOSARTAN. [Concomitant]
     Active Substance: LOSARTAN
  3. BACLOFEN. [Concomitant]
     Active Substance: BACLOFEN
  4. IMATINIB. [Suspect]
     Active Substance: IMATINIB MESYLATE
     Indication: GASTROINTESTINAL STROMAL TUMOUR
     Route: 048
     Dates: start: 20210525
  5. AMBIEN [Concomitant]
     Active Substance: ZOLPIDEM TARTRATE

REACTIONS (4)
  - Eye swelling [None]
  - Yellow skin [None]
  - Pallor [None]
  - Ocular icterus [None]

NARRATIVE: CASE EVENT DATE: 20210831
